FAERS Safety Report 10120260 (Version 2)
Quarter: 2014Q2

REPORT INFORMATION
  Report Type: Spontaneous
  Country: US (occurrence: US)
  Receive Date: 20140425
  Receipt Date: 20140513
  Transmission Date: 20141212
  Serious: No
  Sender: FDA-Public Use
  Company Number: US-PFIZER INC-2014112518

PATIENT
  Age: 66 Year
  Sex: Female
  Weight: 98 kg

DRUGS (10)
  1. NICOTROL NASAL SPRAY [Suspect]
     Indication: SMOKING CESSATION THERAPY
     Dosage: UNK, 10 TO 15 TIMES DAILY
     Route: 045
     Dates: start: 20140420
  2. PROAIR HFA [Concomitant]
     Indication: LUNG DISORDER
     Dosage: UNK, AS NEEDED
  3. BENADRYL [Concomitant]
     Indication: HYPERSENSITIVITY
     Dosage: UNK,AS NEEDED
  4. VITAMIN D3 [Concomitant]
     Indication: VITAMIN D DEFICIENCY
     Dosage: 3000 IU, DAILY
  5. DICYCLOMINE [Concomitant]
     Dosage: UNK
  6. MELOXICAM [Concomitant]
     Dosage: UNK
  7. DICLOFENAC [Concomitant]
     Dosage: UNK
  8. GABAPENTIN [Concomitant]
     Dosage: UNK
  9. QUETIAPINE [Concomitant]
     Dosage: UNK
  10. IBUPROFEN [Concomitant]
     Dosage: UNK

REACTIONS (2)
  - Wrong technique in drug usage process [Unknown]
  - Burning sensation [Not Recovered/Not Resolved]
